FAERS Safety Report 5155655-3 (Version None)
Quarter: 2006Q4

REPORT INFORMATION
  Report Type: 
  Country: None (occurrence: None)
  Receive Date: 20061110
  Receipt Date: 20061030
  Transmission Date: 20070319
  Serious: Yes (Hospitalization, Other)
  Sender: FDA-Public Use
  Company Number: HQWYE960231OCT06

PATIENT
  Age: 46 Year
  Sex: Female
  Weight: 72.64 kg

DRUGS (3)
  1. EFFEXOR XR [Suspect]
     Indication: DEPRESSION
     Dosage: 150 MG 1X PER 1 DAY, ORAL
     Route: 048
     Dates: start: 20010101
  2. ALCOHOL (ETHANOL) [Suspect]
     Dosage: 2 BEERS, ORAL
     Route: 048
     Dates: start: 20060301, end: 20060301
  3. TRAZODONE HCL [Concomitant]

REACTIONS (3)
  - ALCOHOL USE [None]
  - AMNESIA [None]
  - UNEVALUABLE EVENT [None]
